FAERS Safety Report 20554617 (Version 1)
Quarter: 2022Q1

REPORT INFORMATION
  Report Type: Spontaneous
  Country: DE (occurrence: DE)
  Receive Date: 20220304
  Receipt Date: 20220304
  Transmission Date: 20220423
  Serious: Yes (Other)
  Sender: FDA-Public Use
  Company Number: DE-ABBVIE-22K-062-4302954-00

PATIENT
  Age: 58 Year
  Sex: Male

DRUGS (5)
  1. VENETOCLAX [Suspect]
     Active Substance: VENETOCLAX
     Indication: Acute myeloid leukaemia
     Route: 048
     Dates: start: 20201111, end: 20201111
  2. VENETOCLAX [Suspect]
     Active Substance: VENETOCLAX
     Route: 048
     Dates: start: 20201112, end: 20201112
  3. VENETOCLAX [Suspect]
     Active Substance: VENETOCLAX
     Route: 048
     Dates: start: 20201113, end: 20201113
  4. VENETOCLAX [Suspect]
     Active Substance: VENETOCLAX
     Route: 048
     Dates: start: 20201114
  5. VENETOCLAX [Suspect]
     Active Substance: VENETOCLAX
     Route: 048
     Dates: start: 20201114

REACTIONS (7)
  - Dysplasia [Unknown]
  - Pneumonia fungal [Unknown]
  - Off label use [Unknown]
  - Pulmonary sarcoidosis [Unknown]
  - Leukocytosis [Unknown]
  - Anaemia [Unknown]
  - Thrombocytopenia [Unknown]

NARRATIVE: CASE EVENT DATE: 20201111
